FAERS Safety Report 6979019-2 (Version None)
Quarter: 2010Q3

REPORT INFORMATION
  Report Type: 
  Country: None (occurrence: None)
  Receive Date: 20100913
  Receipt Date: 20100902
  Transmission Date: 20110219
  Serious: Yes (Hospitalization)
  Sender: FDA-Public Use
  Company Number: US-BAYER-201031513NA

PATIENT
  Sex: Male

DRUGS (5)
  1. SOTALOL HCL [Suspect]
     Indication: PRODUCT USED FOR UNKNOWN INDICATION
     Dates: start: 20090801, end: 20100101
  2. METFORMIN HCL [Concomitant]
  3. COUMADIN [Concomitant]
  4. PLAVIX [Concomitant]
  5. ASPIRIN [Concomitant]

REACTIONS (4)
  - AORTIC OCCLUSION [None]
  - COUGH [None]
  - DYSPHONIA [None]
  - PARAESTHESIA MUCOSAL [None]
